FAERS Safety Report 15333884 (Version 1)
Quarter: 2018Q3

REPORT INFORMATION
  Report Type: Spontaneous
  Country: US (occurrence: US)
  Receive Date: 20180825
  Receipt Date: 20180825
  Transmission Date: 20181010
  Serious: No
  Sender: FDA-Public Use
  Company Number: None

PATIENT
  Age: 48 Year
  Sex: Female

DRUGS (1)
  1. SENSODYNE RAPID RELIEF [Suspect]
     Active Substance: STANNOUS FLUORIDE
     Indication: SENSITIVITY OF TEETH
     Dosage: ?          OTHER ROUTE:BRUSHING TEETH?
     Dates: start: 20180714, end: 20180817

REACTIONS (3)
  - Dry mouth [None]
  - Oral pain [None]
  - Gingival pain [None]

NARRATIVE: CASE EVENT DATE: 20180817
